FAERS Safety Report 17875194 (Version 1)
Quarter: 2020Q2

REPORT INFORMATION
  Report Type: Spontaneous
  Country: US (occurrence: US)
  Receive Date: 20200605
  Receipt Date: 20200605
  Transmission Date: 20200714
  Serious: No
  Sender: FDA-Public Use
  Company Number: None

PATIENT
  Age: 34 Year
  Sex: Female
  Weight: 52.65 kg

DRUGS (10)
  1. GINGER. [Concomitant]
     Active Substance: GINGER
  2. QUETIAPINE. [Concomitant]
     Active Substance: QUETIAPINE
  3. CROMOLYN [Concomitant]
     Active Substance: CROMOLYN
  4. OZONE (03) [Suspect]
     Active Substance: OZONE
     Indication: INFLAMMATION
     Dates: start: 20200529, end: 20200529
  5. RUCONEST [Concomitant]
     Active Substance: HUMAN C1-ESTERASE INHIBITOR
  6. OZONE (03) [Suspect]
     Active Substance: OZONE
     Indication: PAIN
     Dates: start: 20200529, end: 20200529
  7. AZELASTINE. [Concomitant]
     Active Substance: AZELASTINE HYDROCHLORIDE
  8. ALBUTEROL. [Concomitant]
     Active Substance: ALBUTEROL
  9. VITAMIN B COMPLEX [Concomitant]
     Active Substance: CYANOCOBALAMIN\DEXPANTHENOL\NIACINAMIDE\PYRIDOXINE HYDROCHLORIDE\RIBOFLAVIN 5^-PHOSPHATE SODIUM\THIAMINE HYDROCHLORIDE\VITAMIN B COMPLEX
  10. VITAMIN C [Concomitant]
     Active Substance: ASCORBIC ACID

REACTIONS (5)
  - Injection site pain [None]
  - Headache [None]
  - Dizziness [None]
  - Malaise [None]
  - Migraine [None]

NARRATIVE: CASE EVENT DATE: 20200529
